FAERS Safety Report 4949284-1 (Version None)
Quarter: 2006Q1

REPORT INFORMATION
  Report Type: 
  Country: None (occurrence: None)
  Receive Date: 20060315
  Receipt Date: 20060302
  Transmission Date: 20060701
  Serious: Yes (Hospitalization)
  Sender: FDA-Public Use
  Company Number: 2006BI003540

PATIENT
  Age: 47 Year
  Sex: Female
  Weight: 85.2762 kg

DRUGS (2)
  1. AVONEX [Suspect]
     Indication: MULTIPLE SCLEROSIS
     Dosage: 30 UG;QW;IM
     Route: 030
     Dates: start: 20060207
  2. TYLENOL (CAPLET) [Concomitant]

REACTIONS (1)
  - OVERDOSE [None]
